FAERS Safety Report 6328542-2 (Version None)
Quarter: 2009Q3

REPORT INFORMATION
  Report Type: 
  Country: None (occurrence: None)
  Receive Date: 20090826
  Receipt Date: 20090814
  Transmission Date: 20100115
  Serious: Yes (Hospitalization)
  Sender: FDA-Public Use
  Company Number: DE-BAUSCH-2009BL004136

PATIENT
  Age: 90 Year
  Sex: Male

DRUGS (2)
  1. CYCLOPENTOLATE HCL [Suspect]
     Indication: OPHTHALMOLOGICAL EXAMINATION
     Route: 047
  2. CYCLOPENTOLATE HCL [Suspect]
     Route: 047

REACTIONS (4)
  - DRUG TOXICITY [None]
  - HEMIANOPIA [None]
  - HEMIPARESIS [None]
  - RETROGRADE AMNESIA [None]
